FAERS Safety Report 4361111-2 (Version None)
Quarter: 2004Q2

REPORT INFORMATION
  Report Type: 
  Country: None (occurrence: None)
  Receive Date: 20040520
  Receipt Date: 20040512
  Transmission Date: 20050107
  Serious: Yes (Hospitalization, Other)
  Sender: FDA-Public Use
  Company Number: US-JNJFOC-20040502934

PATIENT
  Sex: Female
  Weight: 68.04 kg

DRUGS (9)
  1. TOPAMAX [Suspect]
     Indication: BIPOLAR DISORDER
     Dosage: 100 MG IN THE AM AND 200 MG AT NIGHT
     Route: 049
  2. COLACE [Concomitant]
  3. LITHIUM CARBONATE [Concomitant]
     Dosage: PATIENT TAKES 300 MG IN THE AM AND 600 MG AT NIGHT.
  4. KLONOPIN [Concomitant]
     Dosage: PATIENT TAKING .5 MG IN THE AM, .5MG AT 5:00PM AND 1 MG AT NIGHT.
  5. WELLBUTRIN [Concomitant]
     Indication: DEPRESSION
  6. PROZAC [Concomitant]
     Dosage: TAKINE DOSAGE IN THE AM.
  7. POTASSIUM [Concomitant]
  8. LIPITOR [Concomitant]
     Dosage: TAKEN AT NIGHT
  9. DITROPAN [Concomitant]
     Dosage: TAKEN AT NIGHT

REACTIONS (2)
  - ANOREXIA NERVOSA [None]
  - WEIGHT DECREASED [None]
